FAERS Safety Report 26157833 (Version 1)
Quarter: 2025Q4

REPORT INFORMATION
  Report Type: Spontaneous
  Country: US (occurrence: None)
  Receive Date: 20251213
  Receipt Date: 20251213
  Transmission Date: 20260118
  Serious: No
  Sender: FDA-CTU
  Company Number: None

PATIENT
  Sex: Female

DRUGS (1)
  1. COSMETICS [Suspect]
     Active Substance: COSMETICS
     Indication: Personal hygiene

REACTIONS (2)
  - Product odour abnormal [None]
  - Product physical issue [None]

NARRATIVE: CASE EVENT DATE: 20251201
